FAERS Safety Report 19425135 (Version 1)
Quarter: 2021Q2

REPORT INFORMATION
  Report Type: Spontaneous
  Country: FR (occurrence: FR)
  Receive Date: 20210616
  Receipt Date: 20210616
  Transmission Date: 20210717
  Serious: Yes (Disabling, Congenital Anomaly, Other)
  Sender: FDA-Public Use
  Company Number: FR-ABBVIE-21K-056-3944824-00

PATIENT
  Sex: Female

DRUGS (1)
  1. DEPAKINE CHRONO [Suspect]
     Active Substance: VALPROATE SODIUM
     Indication: MATERNAL EXPOSURE TIMING UNSPECIFIED
     Route: 064

REACTIONS (17)
  - Macrocephaly [Unknown]
  - Psychomotor retardation [Unknown]
  - Ear disorder [Unknown]
  - Neurodevelopmental disorder [Unknown]
  - Learning disability [Unknown]
  - Sleep disorder [Unknown]
  - Foetal exposure during pregnancy [Unknown]
  - Disturbance in attention [Unknown]
  - Fatigue [Unknown]
  - Pharyngeal disorder [Unknown]
  - Nasal disorder [Unknown]
  - Hypersensitivity [Unknown]
  - Autism spectrum disorder [Unknown]
  - Language disorder [Unknown]
  - Communication disorder [Unknown]
  - Dysmorphism [Unknown]
  - Behaviour disorder [Unknown]
